FAERS Safety Report 9431821 (Version 1)
Quarter: 2013Q3

REPORT INFORMATION
  Report Type: Report from Study
  Country: IN (occurrence: IN)
  Receive Date: 20130731
  Receipt Date: 20130731
  Transmission Date: 20140515
  Serious: Yes (Death)
  Sender: FDA-Public Use
  Company Number: PHHY2013IN079976

PATIENT
  Age: 86 Year
  Sex: Male

DRUGS (1)
  1. EXELON PATCH [Suspect]
     Indication: PARKINSON^S DISEASE
     Dosage: 4.6 MG, / 24 HOURS
     Route: 062
     Dates: start: 20100809

REACTIONS (4)
  - Respiratory tract congestion [Fatal]
  - Nasopharyngitis [Fatal]
  - Cough [Fatal]
  - Dyspnoea [Fatal]
